FAERS Safety Report 11768721 (Version 1)
Quarter: 2015Q4

REPORT INFORMATION
  Report Type: Spontaneous
  Country: ES (occurrence: ES)
  Receive Date: 20151123
  Receipt Date: 20151123
  Transmission Date: 20160304
  Serious: Yes (Other)
  Sender: FDA-Public Use
  Company Number: PHHY2015ES148743

PATIENT
  Age: 70 Year
  Sex: Male

DRUGS (24)
  1. CIPROFLOXACIN. [Concomitant]
     Active Substance: CIPROFLOXACIN
     Indication: SEPTIC SHOCK
     Route: 065
  2. CIPROFLOXACIN. [Concomitant]
     Active Substance: CIPROFLOXACIN
     Indication: PSOAS ABSCESS
  3. IMIPENEM [Concomitant]
     Active Substance: IMIPENEM
     Indication: SEPTIC SHOCK
     Route: 065
  4. IMIPENEM [Concomitant]
     Active Substance: IMIPENEM
     Indication: PSOAS ABSCESS
  5. MEROPENEM. [Suspect]
     Active Substance: MEROPENEM
     Indication: PSOAS ABSCESS
  6. AMPICILLIN [Suspect]
     Active Substance: AMPICILLIN
     Indication: SEPTIC SHOCK
     Route: 065
  7. AZTREONAM. [Suspect]
     Active Substance: AZTREONAM
     Indication: SEPTIC SHOCK
     Route: 065
  8. CLINDAMYCIN [Suspect]
     Active Substance: CLINDAMYCIN\CLINDAMYCIN PHOSPHATE
     Indication: SEPTIC SHOCK
     Route: 065
  9. CEFTRIAXONE. [Suspect]
     Active Substance: CEFTRIAXONE
     Indication: PSOAS ABSCESS
  10. CLOXACILLIN [Suspect]
     Active Substance: CLOXACILLIN
     Indication: SEPTIC SHOCK
     Route: 065
  11. AZTREONAM. [Suspect]
     Active Substance: AZTREONAM
     Indication: PSOAS ABSCESS
  12. CLINDAMYCIN [Suspect]
     Active Substance: CLINDAMYCIN\CLINDAMYCIN PHOSPHATE
     Indication: PSOAS ABSCESS
  13. DORIPENEM [Suspect]
     Active Substance: DORIPENEM
     Indication: PSOAS ABSCESS
  14. MEROPENEM. [Suspect]
     Active Substance: MEROPENEM
     Indication: SEPTIC SHOCK
     Route: 065
  15. AMPICILLIN [Suspect]
     Active Substance: AMPICILLIN
     Indication: PSOAS ABSCESS
  16. FUROSEMIDE. [Concomitant]
     Active Substance: FUROSEMIDE
     Indication: SEPTIC SHOCK
     Route: 065
  17. OMEPRAZOLE. [Concomitant]
     Active Substance: OMEPRAZOLE
     Indication: PSOAS ABSCESS
  18. CLOXACILLIN [Suspect]
     Active Substance: CLOXACILLIN
     Indication: PSOAS ABSCESS
  19. PENICILLIN G [Suspect]
     Active Substance: PENICILLIN G
     Indication: PSOAS ABSCESS
  20. FUROSEMIDE. [Concomitant]
     Active Substance: FUROSEMIDE
     Indication: PSOAS ABSCESS
  21. OMEPRAZOLE. [Concomitant]
     Active Substance: OMEPRAZOLE
     Indication: SEPTIC SHOCK
     Route: 065
  22. CEFTRIAXONE. [Suspect]
     Active Substance: CEFTRIAXONE
     Indication: SEPTIC SHOCK
     Route: 065
  23. DORIPENEM [Suspect]
     Active Substance: DORIPENEM
     Indication: SEPTIC SHOCK
     Route: 065
  24. PENICILLIN G [Suspect]
     Active Substance: PENICILLIN G
     Indication: SEPTIC SHOCK
     Route: 065

REACTIONS (1)
  - Toxic skin eruption [Not Recovered/Not Resolved]
